FAERS Safety Report 8748249 (Version 2)
Quarter: 2015Q3

REPORT INFORMATION
  Report Type: Report from Study
  Country: US (occurrence: US)
  Receive Date: 20120827
  Receipt Date: 20150701
  Transmission Date: 20151125
  Serious: Yes (Death, Hospitalization, Other)
  Sender: FDA-Public Use
  Company Number: US-ROCHE-1104485

PATIENT
  Age: 71 Year
  Sex: Male
  Weight: 87.7 kg

DRUGS (42)
  1. AVASTIN [Suspect]
     Active Substance: BEVACIZUMAB
     Route: 042
  2. TAXOTERE [Suspect]
     Active Substance: DOCETAXEL
     Indication: PRODUCT USED FOR UNKNOWN INDICATION
     Route: 065
  3. CISPLATIN. [Concomitant]
     Active Substance: CISPLATIN
     Route: 042
  4. CISPLATIN. [Concomitant]
     Active Substance: CISPLATIN
     Route: 042
  5. K-DUR [Concomitant]
     Active Substance: POTASSIUM CHLORIDE
     Route: 065
  6. CISPLATIN. [Concomitant]
     Active Substance: CISPLATIN
     Route: 042
  7. NAVELBINE [Concomitant]
     Active Substance: VINORELBINE TARTRATE
     Route: 065
  8. NAVELBINE [Concomitant]
     Active Substance: VINORELBINE TARTRATE
     Route: 065
  9. MORPHINE SULFATE. [Concomitant]
     Active Substance: MORPHINE SULFATE
     Route: 042
  10. CLINDAMYCIN [Concomitant]
     Active Substance: CLINDAMYCIN\CLINDAMYCIN PHOSPHATE
  11. GEMZAR [Concomitant]
     Active Substance: GEMCITABINE HYDROCHLORIDE
     Route: 042
  12. DECADRON [Concomitant]
     Active Substance: DEXAMETHASONE
     Route: 042
  13. ZOFRAN [Concomitant]
     Active Substance: ONDANSETRON HYDROCHLORIDE
     Route: 042
  14. LASIX [Concomitant]
     Active Substance: FUROSEMIDE
     Route: 042
  15. MANNITOL. [Concomitant]
     Active Substance: MANNITOL
     Route: 065
  16. TARCEVA [Suspect]
     Active Substance: ERLOTINIB HYDROCHLORIDE
     Indication: MALIGNANT RESPIRATORY TRACT NEOPLASM
     Route: 065
  17. AVASTIN [Suspect]
     Active Substance: BEVACIZUMAB
     Indication: LUNG NEOPLASM MALIGNANT
     Route: 042
     Dates: start: 20060316
  18. DECADRON [Concomitant]
     Active Substance: DEXAMETHASONE
     Route: 042
  19. ALOXI [Concomitant]
     Active Substance: PALONOSETRON HYDROCHLORIDE
     Route: 065
  20. LEUKINE [Concomitant]
     Active Substance: SARGRAMOSTIM
     Route: 058
  21. COUMADIN [Concomitant]
     Active Substance: WARFARIN SODIUM
  22. AVASTIN [Suspect]
     Active Substance: BEVACIZUMAB
     Route: 042
  23. NEULASTA [Concomitant]
     Active Substance: PEGFILGRASTIM
     Route: 058
  24. BENADRYL [Concomitant]
     Active Substance: DIPHENHYDRAMINE HYDROCHLORIDE
     Route: 065
  25. MANNITOL. [Concomitant]
     Active Substance: MANNITOL
     Route: 065
  26. ARANESP [Concomitant]
     Active Substance: DARBEPOETIN ALFA
     Route: 042
  27. PROZAC [Concomitant]
     Active Substance: FLUOXETINE HYDROCHLORIDE
  28. DIOVAN [Concomitant]
     Active Substance: VALSARTAN
  29. AVASTIN [Suspect]
     Active Substance: BEVACIZUMAB
     Route: 042
  30. LASIX [Concomitant]
     Active Substance: FUROSEMIDE
     Route: 042
  31. ARANESP [Concomitant]
     Active Substance: DARBEPOETIN ALFA
     Indication: ANAEMIA
     Route: 042
  32. HYDROCORTISONE. [Concomitant]
     Active Substance: HYDROCORTISONE
     Route: 065
  33. PROCRIT [Concomitant]
     Active Substance: ERYTHROPOIETIN
     Route: 042
  34. MAGNESIUM SULFATE. [Concomitant]
     Active Substance: MAGNESIUM SULFATE
     Route: 065
  35. NORVASC [Concomitant]
     Active Substance: AMLODIPINE BESYLATE
  36. HUMIBID [Concomitant]
     Active Substance: GUAIFENESIN
  37. ALBUTEROL. [Concomitant]
     Active Substance: ALBUTEROL
  38. AVASTIN [Suspect]
     Active Substance: BEVACIZUMAB
     Route: 042
  39. NAVELBINE [Concomitant]
     Active Substance: VINORELBINE TARTRATE
     Route: 065
  40. LEXAPRO [Concomitant]
     Active Substance: ESCITALOPRAM OXALATE
  41. LEVAQUIN [Concomitant]
     Active Substance: LEVOFLOXACIN
  42. SPIRIVA [Concomitant]
     Active Substance: TIOTROPIUM BROMIDE MONOHYDRATE

REACTIONS (32)
  - Death [Fatal]
  - Lacunar infarction [Unknown]
  - Rash [Unknown]
  - Malaise [Unknown]
  - Drug hypersensitivity [Unknown]
  - Cerebral ischaemia [Unknown]
  - Chronic obstructive pulmonary disease [Unknown]
  - Discomfort [Unknown]
  - Visual impairment [Unknown]
  - Mucosal membrane hyperplasia [Unknown]
  - Abdominal distension [Unknown]
  - Percussion test abnormal [Unknown]
  - Fatigue [Unknown]
  - Neuropathy peripheral [Unknown]
  - Disease progression [Unknown]
  - Emphysema [Unknown]
  - Muscle spasms [Unknown]
  - Headache [Unknown]
  - Constipation [Recovered/Resolved]
  - Dry skin [Unknown]
  - Pruritus [Unknown]
  - Dyspnoea exertional [Unknown]
  - Dysphonia [Unknown]
  - Gastrointestinal sounds abnormal [Unknown]
  - Asthenia [Unknown]
  - Oropharyngeal pain [Unknown]
  - Abdominal hernia [Unknown]
  - Oesophagitis [Unknown]
  - Haemoptysis [Unknown]
  - Petechiae [Unknown]
  - Cough [Unknown]
  - Diarrhoea [Unknown]

NARRATIVE: CASE EVENT DATE: 200702
